FAERS Safety Report 12923944 (Version 1)
Quarter: 2016Q4

REPORT INFORMATION
  Report Type: Spontaneous
  Country: US (occurrence: US)
  Receive Date: 20161109
  Receipt Date: 20161109
  Transmission Date: 20170207
  Serious: No
  Sender: FDA-Public Use
  Company Number: US-SHIRE-US201615796

PATIENT
  Age: 67 Year
  Sex: Female

DRUGS (2)
  1. DOXYCYCLINE. [Suspect]
     Active Substance: DOXYCYCLINE
     Indication: ROSACEA
     Dosage: UNK, UNKNOWN
     Route: 065
     Dates: start: 201610, end: 20161022
  2. XIIDRA [Suspect]
     Active Substance: LIFITEGRAST
     Indication: DRY EYE
     Dosage: 1 GTT (OU), 2X/DAY:BID
     Route: 047
     Dates: start: 20161007, end: 20161022

REACTIONS (5)
  - Diplopia [Unknown]
  - Lacrimation increased [Unknown]
  - Condition aggravated [Unknown]
  - Rosacea [Unknown]
  - Eye pruritus [Unknown]

NARRATIVE: CASE EVENT DATE: 201610
